FAERS Safety Report 9472619 (Version 2)
Quarter: 2013Q3

REPORT INFORMATION
  Report Type: Spontaneous
  Country: US (occurrence: US)
  Receive Date: 20130823
  Receipt Date: 20130828
  Transmission Date: 20140515
  Serious: Yes (Death)
  Sender: FDA-Public Use
  Company Number: US-ASTELLAS-2013US008861

PATIENT
  Sex: Female

DRUGS (6)
  1. TARCEVA [Suspect]
     Indication: LUNG NEOPLASM MALIGNANT
     Dosage: UNK
     Route: 065
  2. KCL-RETARD ZYMA [Concomitant]
     Indication: HYPOKALAEMIA
     Dosage: UNK
     Route: 048
  3. VICODIN ES [Concomitant]
     Indication: PAIN
     Dosage: UNK
     Route: 048
  4. APO-FOLIC ACID [Concomitant]
     Indication: PRODUCT USED FOR UNKNOWN INDICATION
     Dosage: 20 MG, UID/QD
     Route: 048
  5. ZOFRAN                             /00955302/ [Concomitant]
     Indication: NAUSEA
     Dosage: 8 MG, PRN
     Route: 048
  6. PROZAC [Concomitant]
     Indication: DEPRESSION
     Dosage: 20 MG, UID/QD
     Route: 048

REACTIONS (3)
  - Lung adenocarcinoma stage IV [Fatal]
  - Metastases to central nervous system [Fatal]
  - Metastases to adrenals [Fatal]
